FAERS Safety Report 10471010 (Version 2)
Quarter: 2014Q4

REPORT INFORMATION
  Report Type: Spontaneous
  Country: PL (occurrence: PL)
  Receive Date: 20140923
  Receipt Date: 20141030
  Transmission Date: 20150528
  Serious: Yes (Death, Hospitalization)
  Sender: FDA-Public Use
  Company Number: PL-TEVA-510138ISR

PATIENT
  Age: 34 Year
  Sex: Female

DRUGS (2)
  1. METFORMIN [Suspect]
     Active Substance: METFORMIN HYDROCHLORIDE
     Route: 048
  2. KETONAL [Suspect]
     Active Substance: KETOPROFEN
     Route: 048

REACTIONS (8)
  - Completed suicide [Fatal]
  - Seizure [Fatal]
  - Hypoglycaemia [Fatal]
  - Toxicity to various agents [Fatal]
  - Circulatory collapse [Fatal]
  - Respiratory failure [Fatal]
  - Hepatorenal syndrome [Fatal]
  - Metabolic acidosis [Fatal]
